FAERS Safety Report 9839311 (Version 2)
Quarter: 2014Q1

REPORT INFORMATION
  Report Type: Spontaneous
  Country: GB (occurrence: GB)
  Receive Date: 20140123
  Receipt Date: 20140228
  Transmission Date: 20141002
  Serious: No
  Sender: FDA-Public Use
  Company Number: PHFR2014GB000830

PATIENT
  Sex: Female

DRUGS (2)
  1. GILENYA [Suspect]
     Route: 048
     Dates: start: 20130914
  2. GABAPENTIN [Concomitant]
     Indication: NEURALGIA
     Dosage: 400 MG, DAILY
     Route: 048

REACTIONS (1)
  - Bronchogenic cyst [Not Recovered/Not Resolved]
